FAERS Safety Report 8454139-4 (Version None)
Quarter: 2012Q2

REPORT INFORMATION
  Report Type: 
  Country: None (occurrence: None)
  Receive Date: 20120620
  Receipt Date: 20120618
  Transmission Date: 20120825
  Serious: Yes (Death)
  Sender: FDA-Public Use
  Company Number: JP-B.I. PHARMACEUTICALS,INC./RIDGEFIELD-2012-BP-13433NB

PATIENT
  Sex: Female
  Weight: 93 kg

DRUGS (5)
  1. CONIEL [Suspect]
     Indication: HYPERTENSION
     Dosage: 4 MG
     Route: 048
     Dates: start: 20050917
  2. VOGLIBOSE OD [Suspect]
     Indication: TYPE 2 DIABETES MELLITUS
     Dosage: 0.6 MG
     Route: 048
     Dates: start: 20100109
  3. ASP1941 [Suspect]
     Indication: TYPE 2 DIABETES MELLITUS
     Dates: start: 20110913
  4. MICARDIS [Suspect]
     Indication: HYPERTENSION
     Dosage: 40 MG
     Route: 048
     Dates: start: 20110817
  5. ATORVASTATIN CALCIUM [Suspect]
     Indication: DYSLIPIDAEMIA
     Dosage: 5 MG
     Route: 048
     Dates: start: 20111220

REACTIONS (1)
  - DEATH [None]
